FAERS Safety Report 17819439 (Version 1)
Quarter: 2020Q2

REPORT INFORMATION
  Report Type: Report from Study
  Country: PH (occurrence: PH)
  Receive Date: 20200523
  Receipt Date: 20200523
  Transmission Date: 20200714
  Serious: Yes (Death, Other)
  Sender: FDA-Public Use
  Company Number: NVSC2020PH099629

PATIENT
  Sex: Female

DRUGS (2)
  1. GLIVEC [Suspect]
     Active Substance: IMATINIB MESYLATE
     Indication: PRODUCT USED FOR UNKNOWN INDICATION
     Dosage: 100 MG (2 TABLETS AFTER BREAKFAST AND DINNER)
     Route: 048
  2. GLIVEC [Suspect]
     Active Substance: IMATINIB MESYLATE
     Dosage: 6 DF, QD (6 TABS DAILY)
     Route: 048

REACTIONS (4)
  - Respiratory arrest [Fatal]
  - Drug intolerance [Unknown]
  - Disease progression [Unknown]
  - Infectious pleural effusion [Unknown]
